FAERS Safety Report 15884167 (Version 2)
Quarter: 2019Q1

REPORT INFORMATION
  Report Type: Spontaneous
  Country: US (occurrence: US)
  Receive Date: 20190129
  Receipt Date: 20190219
  Transmission Date: 20190417
  Serious: Yes (Other)
  Sender: FDA-Public Use
  Company Number: US-BAYER-2019-017384

PATIENT
  Age: 30 Year
  Sex: Female
  Weight: 86.6 kg

DRUGS (3)
  1. MIRENA [Suspect]
     Active Substance: LEVONORGESTREL
  2. OXYCODONE [Concomitant]
     Active Substance: OXYCODONE
     Dosage: UNK
     Route: 048
  3. MIRENA [Suspect]
     Active Substance: LEVONORGESTREL
     Dosage: 20 MCG/24HR, CONT
     Route: 015
     Dates: start: 20170401, end: 20180323

REACTIONS (7)
  - Vaginal discharge [None]
  - Vaginal odour [None]
  - Vaginal infection [None]
  - Coital bleeding [Not Recovered/Not Resolved]
  - Menstruation irregular [None]
  - Post procedural haemorrhage [None]
  - Vaginal cyst [None]

NARRATIVE: CASE EVENT DATE: 20170401
